FAERS Safety Report 6718069-8 (Version None)
Quarter: 2010Q2

REPORT INFORMATION
  Report Type: 
  Country: None (occurrence: None)
  Receive Date: 20100510
  Receipt Date: 20100430
  Transmission Date: 20101027
  Serious: Yes (Other)
  Sender: FDA-Public Use
  Company Number: A0814906A

PATIENT
  Sex: Female

DRUGS (3)
  1. AVANDIA [Suspect]
     Indication: DIABETES MELLITUS
     Dosage: 8MG PER DAY
     Route: 048
     Dates: start: 20040211, end: 20051019
  2. AVANDAMET [Suspect]
     Dates: start: 20051019, end: 20051222
  3. AVANDIA [Suspect]
     Dosage: 4MG PER DAY
     Dates: start: 20051222, end: 20071006

REACTIONS (1)
  - CARDIAC FAILURE CONGESTIVE [None]
